FAERS Safety Report 17896850 (Version 3)
Quarter: 2020Q3

REPORT INFORMATION
  Report Type: Spontaneous
  Country: SY (occurrence: SY)
  Receive Date: 20200615
  Receipt Date: 20200821
  Transmission Date: 20201103
  Serious: Yes (Other)
  Sender: FDA-Public Use
  Company Number: SY-US-PROVELL PHARMACEUTICALS LLC-9167086

PATIENT
  Age: 35 Year
  Sex: Female

DRUGS (3)
  1. FLUDROCORTISONE [Concomitant]
     Active Substance: FLUDROCORTISONE
     Indication: PRODUCT USED FOR UNKNOWN INDICATION
  2. EUTHYROX [Suspect]
     Active Substance: LEVOTHYROXINE SODIUM
     Indication: POST PROCEDURAL HYPOTHYROIDISM
     Dosage: 150 (ONE AND A HALF TABLETS) EVERYDAY AND 100 ON FRIDAY AND SATURDAY
  3. CALCIUM                            /00241701/ [Concomitant]
     Indication: PRODUCT USED FOR UNKNOWN INDICATION
     Dosage: PILLS

REACTIONS (8)
  - Blood thyroid stimulating hormone decreased [Not Recovered/Not Resolved]
  - Hypotension [Unknown]
  - Mental disorder [Unknown]
  - Neuralgia [Unknown]
  - Syncope [Unknown]
  - Fatigue [Unknown]
  - Heart rate increased [Unknown]
  - Hypoaesthesia [Unknown]
